FAERS Safety Report 25574552 (Version 1)
Quarter: 2025Q3

REPORT INFORMATION
  Report Type: Report from Study
  Country: US (occurrence: US)
  Receive Date: 20250718
  Receipt Date: 20250718
  Transmission Date: 20251021
  Serious: Yes (Other)
  Sender: JAZZ
  Company Number: US-JAZZ PHARMACEUTICALS-2023-US-004699

PATIENT
  Age: 61 Year
  Sex: Female

DRUGS (28)
  1. XYREM [Suspect]
     Active Substance: SODIUM OXYBATE
     Indication: Narcolepsy
     Dosage: 3 GRAM, BID
  2. XYREM [Suspect]
     Active Substance: SODIUM OXYBATE
     Dosage: 2.25 GRAM, BID
  3. XYREM [Suspect]
     Active Substance: SODIUM OXYBATE
     Dosage: 3.75 GRAM, BID
  4. XYREM [Suspect]
     Active Substance: SODIUM OXYBATE
     Dosage: 3.25 GRAM, BID
  5. XYREM [Suspect]
     Active Substance: SODIUM OXYBATE
  6. XYREM [Suspect]
     Active Substance: SODIUM OXYBATE
  7. XYREM [Suspect]
     Active Substance: SODIUM OXYBATE
  8. XYREM [Suspect]
     Active Substance: SODIUM OXYBATE
  9. XYREM [Suspect]
     Active Substance: SODIUM OXYBATE
     Dosage: 3.5 GRAM, QD
  10. XYREM [Suspect]
     Active Substance: SODIUM OXYBATE
  11. XYREM [Suspect]
     Active Substance: SODIUM OXYBATE
  12. XYREM [Suspect]
     Active Substance: SODIUM OXYBATE
  13. XYREM [Suspect]
     Active Substance: SODIUM OXYBATE
     Dosage: 3.5 GRAM, BID (3.5G AT BEDTIME, THEN TAKE 3.5G 2.5-4 HOURS LATER)
     Dates: start: 20240417
  14. XYREM [Suspect]
     Active Substance: SODIUM OXYBATE
  15. XYREM [Suspect]
     Active Substance: SODIUM OXYBATE
     Dosage: 4.5 GRAM, BID
  16. MODAFINIL [Suspect]
     Active Substance: MODAFINIL
     Indication: Product used for unknown indication
  17. ALLEGRA ALLERGY [Concomitant]
     Active Substance: FEXOFENADINE HYDROCHLORIDE
     Indication: Product used for unknown indication
  18. OLOPATADINE HYDROCHLORIDE [Concomitant]
     Active Substance: OLOPATADINE HYDROCHLORIDE
     Indication: Product used for unknown indication
  19. RECLAST [Concomitant]
     Active Substance: ZOLEDRONIC ACID
     Indication: Product used for unknown indication
  20. ABILIFY [Concomitant]
     Active Substance: ARIPIPRAZOLE
     Indication: Product used for unknown indication
  21. XIIDRA [Concomitant]
     Active Substance: LIFITEGRAST
     Indication: Product used for unknown indication
  22. WAKIX [Concomitant]
     Active Substance: PITOLISANT HYDROCHLORIDE
     Indication: Product used for unknown indication
  23. TRETINOIN [Concomitant]
     Active Substance: TRETINOIN
     Indication: Product used for unknown indication
  24. CLINDAMYCIN PHOSPHATE [Concomitant]
     Active Substance: CLINDAMYCIN PHOSPHATE
     Indication: Product used for unknown indication
  25. PATADAY [Concomitant]
     Active Substance: OLOPATADINE HYDROCHLORIDE
     Indication: Product used for unknown indication
  26. RISPERIDONE [Concomitant]
     Active Substance: RISPERIDONE
     Indication: Product used for unknown indication
  27. DILAUDID [Concomitant]
     Active Substance: HYDROMORPHONE HYDROCHLORIDE
     Indication: Product used for unknown indication
  28. METFORMIN [Concomitant]
     Active Substance: METFORMIN HYDROCHLORIDE
     Indication: Product used for unknown indication

REACTIONS (28)
  - Surgery [Unknown]
  - Intermenstrual bleeding [Unknown]
  - Blood urine present [Unknown]
  - White blood cells urine positive [Unknown]
  - Breast mass [Unknown]
  - Stress [Unknown]
  - Blood sodium decreased [Unknown]
  - Dental care [Unknown]
  - Respiratory rate increased [Unknown]
  - Feeling jittery [Unknown]
  - Balance disorder [Unknown]
  - Sinus congestion [Unknown]
  - Neuropsychological symptoms [Unknown]
  - Eye pruritus [Unknown]
  - Dyspnoea [Unknown]
  - Dizziness [Unknown]
  - Sleep apnoea syndrome [Unknown]
  - Vomiting [Unknown]
  - COVID-19 [Unknown]
  - Illness [Unknown]
  - Depression [Unknown]
  - Wrong dose [Unknown]
  - Fungal skin infection [Unknown]
  - Sinusitis [Unknown]
  - Cough [Unknown]
  - Therapeutic product effect delayed [Unknown]
  - Intentional dose omission [Unknown]
  - Intentional product use issue [Unknown]

NARRATIVE: CASE EVENT DATE: 20250616
